FAERS Safety Report 14400996 (Version 6)
Quarter: 2018Q3

REPORT INFORMATION
  Report Type: Spontaneous
  Country: FR (occurrence: FR)
  Receive Date: 20180117
  Receipt Date: 20180902
  Transmission Date: 20181010
  Serious: Yes (Other)
  Sender: FDA-Public Use
  Company Number: FR-CONCORDIA PHARMACEUTICALS INC.-GSH201801-000209

PATIENT
  Age: 57 Year
  Sex: Female

DRUGS (14)
  1. ZOCOR [Concomitant]
     Active Substance: SIMVASTATIN
     Dates: start: 2010
  2. PLAQUENIL [Suspect]
     Active Substance: HYDROXYCHLOROQUINE SULFATE
     Indication: LUNG DISORDER
     Route: 048
     Dates: start: 2009, end: 201302
  3. PAROXETINE. [Concomitant]
     Active Substance: PAROXETINE
  4. LYSANXIA [Concomitant]
     Active Substance: PRAZEPAM
  5. CORTICOSTEROID NOS [Concomitant]
     Active Substance: CORTICOSTEROID NOS
     Dates: start: 2017
  6. HYDROCORTISONE. [Concomitant]
     Active Substance: HYDROCORTISONE
     Dates: start: 200707
  7. OGAST [Concomitant]
     Active Substance: LANSOPRAZOLE
  8. MEPRONIZINE [Concomitant]
     Active Substance: ACEPROMETAZINE MALEATE\MEPROBAMATE
  9. PLAQUENIL [Suspect]
     Active Substance: HYDROXYCHLOROQUINE SULFATE
     Indication: ARTHROPATHY
  10. PLAQUENIL [Suspect]
     Active Substance: HYDROXYCHLOROQUINE SULFATE
     Indication: SKIN DISORDER
  11. EFFERALGAN CODEINE [Concomitant]
     Active Substance: ACETAMINOPHEN\CODEINE PHOSPHATE
  12. TETRAZEPAM [Concomitant]
     Active Substance: TETRAZEPAM
  13. PLAQUENIL [Suspect]
     Active Substance: HYDROXYCHLOROQUINE SULFATE
     Indication: SARCOIDOSIS
     Route: 048
     Dates: start: 20060209, end: 2009
  14. CALCIPRAT [Concomitant]

REACTIONS (5)
  - Retinopathy [Not Recovered/Not Resolved]
  - Visual impairment [Not Recovered/Not Resolved]
  - Ocular discomfort [Not Recovered/Not Resolved]
  - Uveitis [Recovered/Resolved with Sequelae]
  - Eyelid ptosis [Unknown]

NARRATIVE: CASE EVENT DATE: 2006
